FAERS Safety Report 6505788-1 (Version None)
Quarter: 2009Q4

REPORT INFORMATION
  Report Type: 
  Country: None (occurrence: None)
  Receive Date: 20091217
  Receipt Date: 20091217
  Transmission Date: 20100525
  Serious: Yes (Hospitalization)
  Sender: FDA-Public Use
  Company Number: None

PATIENT
  Sex: Male
  Weight: 100 kg

DRUGS (10)
  1. CYTARABINE [Suspect]
     Dosage: 70 MG
  2. DAUNORUBICIN HCL [Suspect]
     Dosage: 275 MG
  3. METHOTREXATE [Suspect]
     Dosage: 60 MG
  4. PEG-L-ASPARAGINASE (K-H) [Suspect]
     Dosage: 10750 IU
  5. PREDNISONE [Suspect]
     Dosage: 5460 MG
  6. VINCRISTINE SULFATE [Suspect]
     Dosage: 12 MG
  7. FLEXERIL [Concomitant]
  8. NORTRIPTYLINE [Concomitant]
  9. OXICODONE [Concomitant]
  10. PRILOSEC [Concomitant]

REACTIONS (42)
  - ACIDOSIS [None]
  - ANAEMIA [None]
  - ASCITES [None]
  - ASPARTATE AMINOTRANSFERASE INCREASED [None]
  - BIOPSY BONE MARROW ABNORMAL [None]
  - BLOOD ALBUMIN DECREASED [None]
  - BLOOD CALCIUM DECREASED [None]
  - BLOOD CULTURE POSITIVE [None]
  - BLOOD UREA INCREASED [None]
  - BODY TEMPERATURE INCREASED [None]
  - CLOSTRIDIAL INFECTION [None]
  - CULTURE STOOL POSITIVE [None]
  - DIARRHOEA [None]
  - DISORIENTATION [None]
  - DYSPHAGIA [None]
  - DYSPHONIA [None]
  - DYSPNOEA [None]
  - ENTEROCOCCAL INFECTION [None]
  - EPIDURAL LIPOMATOSIS [None]
  - FALL [None]
  - HALLUCINATION [None]
  - HYPONATRAEMIA [None]
  - HYPOTENSION [None]
  - INCOHERENT [None]
  - JUGULAR VEIN THROMBOSIS [None]
  - KIDNEY ENLARGEMENT [None]
  - LOSS OF CONSCIOUSNESS [None]
  - MULTI-ORGAN FAILURE [None]
  - MUSCULAR WEAKNESS [None]
  - OEDEMA PERIPHERAL [None]
  - OPHTHALMOPLEGIA [None]
  - PLEURAL EFFUSION [None]
  - PROTEIN TOTAL DECREASED [None]
  - PUPILS UNEQUAL [None]
  - RASH [None]
  - RENAL DISORDER [None]
  - SEPTIC SHOCK [None]
  - SUBCLAVIAN VEIN THROMBOSIS [None]
  - TACHYCARDIA [None]
  - TONGUE DISORDER [None]
  - VASOCONSTRICTION [None]
  - VITH NERVE PARALYSIS [None]
